FAERS Safety Report 12592882 (Version 5)
Quarter: 2016Q4

REPORT INFORMATION
  Report Type: Spontaneous
  Country: JP (occurrence: JP)
  Receive Date: 20160726
  Receipt Date: 20161209
  Transmission Date: 20170207
  Serious: Yes (Death, Hospitalization, Disabling, Other)
  Sender: FDA-Public Use
  Company Number: PHJP2016JP020943

PATIENT
  Age: 49 Year
  Sex: Female

DRUGS (2)
  1. ZOMETA [Suspect]
     Active Substance: ZOLEDRONIC ACID
     Dosage: 4 MG, UNK
     Route: 041
     Dates: start: 200906, end: 200907
  2. ZOMETA [Suspect]
     Active Substance: ZOLEDRONIC ACID
     Indication: METASTASES TO BONE
     Dosage: 4 MG, UNK
     Route: 041
     Dates: end: 200808

REACTIONS (15)
  - Breast cancer [Fatal]
  - Oral dysaesthesia [Unknown]
  - Osteonecrosis of jaw [Recovered/Resolved with Sequelae]
  - Bone swelling [Unknown]
  - Malignant neoplasm progression [Fatal]
  - Pathological fracture [Unknown]
  - Primary sequestrum [Unknown]
  - Hypophagia [Unknown]
  - Purulence [Unknown]
  - Osteonecrosis of jaw [Not Recovered/Not Resolved]
  - Renal impairment [Unknown]
  - Pain in jaw [Unknown]
  - Oroantral fistula [Unknown]
  - Exposed bone in jaw [Unknown]
  - Erythema [Unknown]

NARRATIVE: CASE EVENT DATE: 200906
